FAERS Safety Report 5355873-5 (Version None)
Quarter: 2007Q2

REPORT INFORMATION
  Report Type: 
  Country: None (occurrence: None)
  Receive Date: 20070530
  Receipt Date: 20061220
  Transmission Date: 20071010
  Serious: Yes (Other)
  Sender: FDA-Public Use
  Company Number: US200609007463

PATIENT
  Age: 31 Year
  Sex: Male
  Weight: 133.8 kg

DRUGS (4)
  1. ZYPREXA [Suspect]
     Dosage: 15 MG
     Dates: start: 20030101
  2. SEROQUEL [Concomitant]
  3. RISPERDAL [Concomitant]
  4. DIVALPROEX SODIUM [Concomitant]

REACTIONS (4)
  - DIABETES MELLITUS NON-INSULIN-DEPENDENT [None]
  - DIABETIC COMA [None]
  - METABOLIC DISORDER [None]
  - PRESCRIBED OVERDOSE [None]
